FAERS Safety Report 9663503 (Version 1)
Quarter: 2013Q4

REPORT INFORMATION
  Report Type: Other
  Country: US (occurrence: US)
  Receive Date: 20131101
  Receipt Date: 20131101
  Transmission Date: 20140711
  Serious: No
  Sender: FDA-Public Use
  Company Number: US-ENDO PHARMACEUTICALS INC.-LISI20110018

PATIENT
  Age: 76 Year
  Sex: Female

DRUGS (2)
  1. LISINOPRIL TABLETS 5MG [Suspect]
     Indication: HYPERTENSION
     Route: 048
     Dates: start: 20100527
  2. LEXAPRO [Suspect]
     Indication: ANXIETY
     Route: 048
     Dates: start: 20100527

REACTIONS (2)
  - Memory impairment [Not Recovered/Not Resolved]
  - Nausea [Recovered/Resolved]
